FAERS Safety Report 17108835 (Version 2)
Quarter: 2019Q4

REPORT INFORMATION
  Report Type: Report from Study
  Country: None (occurrence: TR)
  Receive Date: 20191204
  Receipt Date: 20191212
  Transmission Date: 20200122
  Serious: Yes (Death)
  Sender: FDA-Public Use
  Company Number: TR-ABBVIE-19K-161-3179691-00

PATIENT
  Age: 59 Year
  Sex: Female
  Weight: 50 kg

DRUGS (1)
  1. DUODOPA [Suspect]
     Active Substance: CARBIDOPA\LEVODOPA
     Indication: PARKINSON^S DISEASE
     Dosage: MORNING DOSE (ML): 4.50 CONTINUOUS DOSE (ML): 1.90 EXTRA DOSE (ML): 0.50
     Route: 050
     Dates: start: 20150114

REACTIONS (1)
  - Death [Fatal]

NARRATIVE: CASE EVENT DATE: 20191019
